FAERS Safety Report 9846195 (Version 2)
Quarter: 2014Q3

REPORT INFORMATION
  Report Type: Spontaneous
  Country: US (occurrence: US)
  Receive Date: 20140127
  Receipt Date: 20140730
  Transmission Date: 20150326
  Serious: Yes (Hospitalization, Other)
  Sender: FDA-Public Use
  Company Number: US-009507513-1401USA010805

PATIENT
  Sex: Female

DRUGS (1)
  1. NUVARING [Suspect]
     Active Substance: ETHINYL ESTRADIOL\ETONOGESTREL
     Indication: CONTRACEPTION
     Dosage: 1 RING
     Route: 067
     Dates: end: 20101013

REACTIONS (25)
  - Pneumonia [Unknown]
  - Pulmonary embolism [Unknown]
  - Pain [Not Recovered/Not Resolved]
  - Prothrombin time abnormal [Unknown]
  - Insomnia [Unknown]
  - Wisdom teeth removal [Unknown]
  - Vena cava filter insertion [Unknown]
  - International normalised ratio abnormal [Unknown]
  - Fibromyalgia [Unknown]
  - Occult blood positive [Unknown]
  - Anxiety [Unknown]
  - Vena cava filter removal [Unknown]
  - Deep vein thrombosis [Unknown]
  - Bronchial hyperreactivity [Unknown]
  - Vena cava thrombosis [Unknown]
  - Off label use [Unknown]
  - Irritable bowel syndrome [Unknown]
  - Ovarian cyst [Unknown]
  - Asthma [Unknown]
  - Osteoarthritis [Unknown]
  - Granuloma [Unknown]
  - Muscle strain [Unknown]
  - Rheumatoid arthritis [Unknown]
  - Incorrect drug administration duration [Unknown]
  - Depression [Unknown]

NARRATIVE: CASE EVENT DATE: 20101011
